FAERS Safety Report 5473959-1 (Version None)
Quarter: 2007Q4

REPORT INFORMATION
  Report Type: 
  Country: None (occurrence: None)
  Receive Date: 20071001
  Receipt Date: 20040216
  Transmission Date: 20080405
  Serious: Yes (Other)
  Sender: FDA-Public Use
  Company Number: US-PFIZER INC-2007061852

PATIENT
  Sex: Female

DRUGS (5)
  1. CELEBREX [Suspect]
  2. TIAZAC [Concomitant]
  3. LOTENSIN [Concomitant]
  4. NORMODYNE [Concomitant]
  5. ALL OTHER THERAPEUTIC PRODUCTS [Concomitant]

REACTIONS (3)
  - FATIGUE [None]
  - HEART RATE INCREASED [None]
  - MALAISE [None]
